FAERS Safety Report 25731887 (Version 1)
Quarter: 2025Q3

REPORT INFORMATION
  Report Type: Spontaneous
  Country: JP (occurrence: JP)
  Receive Date: 20250827
  Receipt Date: 20250827
  Transmission Date: 20251021
  Serious: Yes (Other)
  Sender: PFIZER
  Company Number: JP-PFIZER INC-PV202500079983

PATIENT
  Age: 73 Year
  Sex: Male
  Weight: 66 kg

DRUGS (17)
  1. ELREXFIO [Suspect]
     Active Substance: ELRANATAMAB-BCMM
     Dosage: 12 MG, 1X/DAY
     Route: 058
     Dates: start: 20240618, end: 20240618
  2. ELREXFIO [Suspect]
     Active Substance: ELRANATAMAB-BCMM
     Dosage: 32 MG, 1X/DAY
     Route: 058
     Dates: start: 20240624, end: 20240624
  3. ELREXFIO [Suspect]
     Active Substance: ELRANATAMAB-BCMM
     Dosage: 76 MG, 1X/DAY
     Route: 058
     Dates: start: 20240628, end: 20240628
  4. ELREXFIO [Suspect]
     Active Substance: ELRANATAMAB-BCMM
     Dosage: 76 MG, 1X/DAY
     Route: 058
     Dates: start: 20240726, end: 20240726
  5. ELREXFIO [Suspect]
     Active Substance: ELRANATAMAB-BCMM
     Dosage: 76 MG, 1X/DAY
     Route: 058
     Dates: start: 20240802, end: 20240802
  6. ELREXFIO [Suspect]
     Active Substance: ELRANATAMAB-BCMM
     Dosage: 76 MG, 1X/DAY
     Route: 058
     Dates: start: 20240808, end: 20240808
  7. ELREXFIO [Suspect]
     Active Substance: ELRANATAMAB-BCMM
     Dosage: 76 MG, 1X/DAY
     Route: 058
     Dates: start: 20240816, end: 20240816
  8. SHAKUYAKUKANZOTO [Concomitant]
     Active Substance: HERBALS
     Indication: Muscle spasms
     Dates: start: 20240612
  9. TENELIGLIPTIN [Concomitant]
     Active Substance: TENELIGLIPTIN
     Dosage: 1 DF, 1X/DAY, AFTER BREAKFAST
     Dates: start: 20240612
  10. BETAMETHASONE DIPROPIONATE [Concomitant]
     Active Substance: BETAMETHASONE DIPROPIONATE
     Indication: Rash
     Dosage: UNK, 2X/DAY, ON RASH BELOW THE NECK
     Route: 061
     Dates: start: 20240612
  11. LOCOID [Concomitant]
     Active Substance: HYDROCORTISONE BUTYRATE
     Route: 061
     Dates: start: 20240612
  12. LANSOPRAZOLE [Concomitant]
     Active Substance: LANSOPRAZOLE
     Dosage: 1 DF, 1X/DAY, AFTER BREAKFAST
     Dates: start: 20240612
  13. ATOVAQUONE [Concomitant]
     Active Substance: ATOVAQUONE
     Dosage: 2 DF, 1X/DAY, AFTER BREAKFAST
     Dates: start: 20240612
  14. MIRABEGRON [Concomitant]
     Active Substance: MIRABEGRON
     Dosage: 1 DF, 1X/DAY, AFTER BREAKFAST
     Dates: start: 20240612
  15. ZOVIRAX [Concomitant]
     Active Substance: ACYCLOVIR
     Dosage: 1X/DAY, AFTER BREAKFAST
  16. SITAFLOXACIN [Concomitant]
     Active Substance: SITAFLOXACIN
     Dosage: 1X/DAY, AFTER BREAKFAST
  17. REPAGLINIDE [Concomitant]
     Active Substance: REPAGLINIDE
     Indication: Diabetes mellitus
     Dosage: 3X/DAY, BEFORE BREAKFAST, LUNCH AND DINNER

REACTIONS (3)
  - Cytomegalovirus viraemia [Not Recovered/Not Resolved]
  - Off label use [Unknown]
  - Product use issue [Unknown]

NARRATIVE: CASE EVENT DATE: 20240618
